FAERS Safety Report 8890145 (Version 1)
Quarter: 2012Q4

REPORT INFORMATION
  Report Type: Report from Study
  Country: CA (occurrence: CA)
  Receive Date: 20121107
  Receipt Date: 20121107
  Transmission Date: 20130627
  Serious: Yes (Other)
  Sender: FDA-Public Use
  Company Number: CA-JNJFOC-20121016303

PATIENT
  Sex: Female

DRUGS (4)
  1. REMICADE [Suspect]
     Indication: RHEUMATOID ARTHRITIS
     Dosage: every 6
     Route: 042
     Dates: start: 20120612
  2. MTX [Concomitant]
     Route: 048
  3. PREDNISONE [Concomitant]
     Route: 048
  4. FOLIC ACID [Concomitant]
     Route: 048

REACTIONS (2)
  - Abasia [Unknown]
  - Discomfort [Unknown]
